FAERS Safety Report 8586097-6 (Version None)
Quarter: 2012Q3

REPORT INFORMATION
  Report Type: 
  Country: None (occurrence: None)
  Receive Date: 20120810
  Receipt Date: 20080924
  Transmission Date: 20120928
  Serious: Yes (Hospitalization)
  Sender: FDA-Public Use
  Company Number: US-ROCHE-1094678

PATIENT
  Sex: Female

DRUGS (1)
  1. XOLAIR [Suspect]
     Indication: ASTHMA

REACTIONS (4)
  - UNEVALUABLE EVENT [None]
  - STRIDOR [None]
  - STATUS ASTHMATICUS [None]
  - SLEEP APNOEA SYNDROME [None]
